FAERS Safety Report 4833352-9 (Version None)
Quarter: 2005Q4

REPORT INFORMATION
  Report Type: 
  Country: None (occurrence: None)
  Receive Date: 20051117
  Receipt Date: 20051104
  Transmission Date: 20060501
  Serious: Yes (Hospitalization)
  Sender: FDA-Public Use
  Company Number: 2005153286

PATIENT
  Age: 77 Year
  Sex: Female

DRUGS (11)
  1. ATORVASTATIN CALCIUM [Suspect]
     Indication: ILL-DEFINED DISORDER
     Dosage: 80 MG (1 IN 1 D), ORAL
     Route: 048
  2. PREVISCAN (FLUINDIONE) [Suspect]
     Indication: ILL-DEFINED DISORDER
     Dosage: 0.5 DOSE FORM (CYCLICAL), ORAL
     Route: 048
  3. SODIUM BICARBONATE IN PLASTIC CONTAINER [Concomitant]
  4. FLUNARIZINE (FLUNARIZINE) [Concomitant]
  5. ROSIGLITAZONE MALEATE [Concomitant]
  6. CLORAZEPATE (CLORAZEPATE DIPOTASSIUM) [Concomitant]
  7. RAMIPRIL [Concomitant]
  8. SOTALOL HCL [Concomitant]
  9. FUROSEMIDE [Concomitant]
  10. GLICLAZIDE (GLICLAZIDE) [Concomitant]
  11. MACROGOL (MACROGOL) [Concomitant]

REACTIONS (7)
  - DIVERTICULUM INTESTINAL [None]
  - DRUG INTERACTION [None]
  - DRUG TOXICITY [None]
  - EPISTAXIS [None]
  - HAEMORRHOIDS [None]
  - INTERNATIONAL NORMALISED RATIO INCREASED [None]
  - RECTAL HAEMORRHAGE [None]
